FAERS Safety Report 5117084-8 (Version None)
Quarter: 2006Q3

REPORT INFORMATION
  Report Type: 
  Country: None (occurrence: None)
  Receive Date: 20060925
  Receipt Date: 20060911
  Transmission Date: 20061208
  Serious: Yes (Other)
  Sender: FDA-Public Use
  Company Number: 2006088511

PATIENT
  Age: 61 Year
  Sex: Male

DRUGS (2)
  1. GLIPIZIDE [Suspect]
     Indication: DIABETES MELLITUS NON-INSULIN-DEPENDENT
     Dosage: 15 MG (5 MG, 3 IN 1 D); ORAL
     Route: 048
     Dates: end: 20060701
  2. PURAN T4      (LEVOTHYROXINE SODIUM) [Concomitant]

REACTIONS (9)
  - BLOOD GLUCOSE INCREASED [None]
  - CHILLS [None]
  - DIABETES MELLITUS INADEQUATE CONTROL [None]
  - HUNGER [None]
  - HYPERHIDROSIS [None]
  - HYPOAESTHESIA [None]
  - MALAISE [None]
  - THERAPEUTIC RESPONSE DECREASED [None]
  - THIRST [None]
